FAERS Safety Report 10685233 (Version 6)
Quarter: 2016Q1

REPORT INFORMATION
  Report Type: Spontaneous
  Country: US (occurrence: US)
  Receive Date: 20141231
  Receipt Date: 20160202
  Transmission Date: 20160525
  Serious: Yes (Congenital Anomaly, Other)
  Sender: FDA-Public Use
  Company Number: US-APOTEX-2014AP006041

PATIENT
  Age: 0 Day
  Sex: Male
  Weight: 3 kg

DRUGS (2)
  1. PAXIL CR [Suspect]
     Active Substance: PAROXETINE HYDROCHLORIDE
     Indication: DEPRESSION
     Dosage: 12.5 MG, UNKNOWN
     Route: 064
     Dates: start: 200401, end: 200504
  2. PAROXETINE HYDROCHLORIDE. [Suspect]
     Active Substance: PAROXETINE HYDROCHLORIDE
     Indication: DEPRESSION
     Dosage: UNK
     Route: 064
     Dates: start: 200505, end: 200609

REACTIONS (15)
  - Bacterial disease carrier [Unknown]
  - Gait disturbance [Unknown]
  - Deafness [Unknown]
  - Jaundice neonatal [Unknown]
  - Sinus bradycardia [Unknown]
  - Autism [Unknown]
  - Failure to thrive [Unknown]
  - Hypoglycaemia neonatal [Unknown]
  - Talipes [Unknown]
  - Hereditary pancreatitis [Unknown]
  - Heart rate abnormal [Unknown]
  - Foetal exposure during pregnancy [Unknown]
  - Speech disorder [Unknown]
  - Developmental delay [Unknown]
  - Feeding disorder [Unknown]

NARRATIVE: CASE EVENT DATE: 20050622
